FAERS Safety Report 8171366-4 (Version None)
Quarter: 2012Q1

REPORT INFORMATION
  Report Type: 
  Country: None (occurrence: None)
  Receive Date: 20120228
  Receipt Date: 20120223
  Transmission Date: 20120608
  Serious: Yes (Other)
  Sender: FDA-Public Use
  Company Number: US-PFIZER INC-2012007852

PATIENT
  Sex: Male
  Weight: 96.1 kg

DRUGS (5)
  1. CHANTIX [Suspect]
     Dosage: 1 MG, 2X/DAY
  2. MULTI-VITAMINS [Concomitant]
     Dosage: UNK
  3. CHANTIX [Suspect]
     Indication: SMOKING CESSATION THERAPY
     Dosage: 0.5 MG, DAILY
     Dates: start: 20111227
  4. CHANTIX [Suspect]
     Dosage: 0.5 MG, 2X/DAY
  5. NICOTINE [Suspect]
     Indication: DRUG WITHDRAWAL SYNDROME
     Dosage: UNK
     Route: 062

REACTIONS (5)
  - DEPRESSION [None]
  - INITIAL INSOMNIA [None]
  - ANXIETY [None]
  - FLATULENCE [None]
  - ABDOMINAL DISCOMFORT [None]
